FAERS Safety Report 20506913 (Version 1)
Quarter: 2022Q1

REPORT INFORMATION
  Report Type: Spontaneous
  Country: SI (occurrence: SI)
  Receive Date: 20220223
  Receipt Date: 20220223
  Transmission Date: 20220424
  Serious: Yes (Death)
  Sender: FDA-Public Use
  Company Number: None

PATIENT
  Age: 81 Year
  Sex: Female
  Weight: 62 kg

DRUGS (1)
  1. ABEMACICLIB [Suspect]
     Active Substance: ABEMACICLIB
     Indication: Breast cancer metastatic
     Dosage: 150 MG, BID
     Route: 048
     Dates: start: 20210322, end: 20211230

REACTIONS (4)
  - Acute respiratory failure [Fatal]
  - Pulmonary embolism [Fatal]
  - Cough [Fatal]
  - Dyspnoea [Fatal]

NARRATIVE: CASE EVENT DATE: 20211201
